FAERS Safety Report 11097120 (Version 1)
Quarter: 2015Q2

REPORT INFORMATION
  Report Type: Spontaneous
  Country: US (occurrence: US)
  Receive Date: 20150507
  Receipt Date: 20150507
  Transmission Date: 20150821
  Serious: Yes (Hospitalization)
  Sender: FDA-Public Use
  Company Number: US-PFIZER INC-2015151223

PATIENT
  Age: 17 Year
  Sex: Female

DRUGS (1)
  1. SOLU-MEDROL [Suspect]
     Active Substance: METHYLPREDNISOLONE SODIUM SUCCINATE
     Dosage: 1 G, EVERY 24 HOURS WHICH INFUSES OVER 1 HOUR
     Route: 017

REACTIONS (2)
  - Flushing [Unknown]
  - Back pain [Unknown]
